FAERS Safety Report 9290885 (Version 1)
Quarter: 2013Q2

REPORT INFORMATION
  Report Type: Spontaneous
  Country: DE (occurrence: DE)
  Receive Date: 20130515
  Receipt Date: 20130515
  Transmission Date: 20140414
  Serious: Yes (Hospitalization, Congenital Anomaly, Other)
  Sender: FDA-Public Use
  Company Number: DE-PFIZER INC-2013143292

PATIENT
  Sex: Male
  Weight: 3.18 kg

DRUGS (3)
  1. RAMIPRIL [Suspect]
     Indication: HYPERTENSION
     Dosage: 5 MG, DAILY(0 TO 8.6 GESTATIONAL WEEK)
     Route: 064
     Dates: start: 20111227, end: 20120227
  2. L-THYROXIN [Concomitant]
     Indication: HYPOTHYROIDISM
     Dosage: 50 UG, DAILY, (0-40.5 GESTATIONAL WEEK)
     Route: 064
     Dates: start: 20111227, end: 20121007
  3. VELNATAL PLUS [Concomitant]
     Indication: PROPHYLAXIS OF NEURAL TUBE DEFECT
     Dosage: 0.4 MG, DAILY, (7.3-40.5 GESTATIONAL WEEK)
     Route: 064
     Dates: start: 20120217, end: 20121007

REACTIONS (9)
  - Ventricular septal defect [Recovering/Resolving]
  - Atrial septal defect [Unknown]
  - Patent ductus arteriosus [Unknown]
  - Talipes [Unknown]
  - Foetal heart rate deceleration [Unknown]
  - Meconium in amniotic fluid [Recovered/Resolved]
  - Neonatal aspiration [Recovered/Resolved]
  - Pneumothorax [Recovered/Resolved]
  - Pneumonia [Recovered/Resolved]
